FAERS Safety Report 16788090 (Version 1)
Quarter: 2019Q3

REPORT INFORMATION
  Report Type: Spontaneous
  Country: SK (occurrence: SK)
  Receive Date: 20190909
  Receipt Date: 20190909
  Transmission Date: 20191005
  Serious: Yes (Other)
  Sender: FDA-Public Use
  Company Number: SK-BAXTER-2019BAX017191

PATIENT
  Age: 57 Year
  Sex: Female
  Weight: 72 kg

DRUGS (6)
  1. SODIUM CHLORIDE 0,9% W/V INTRAVENOUS INFUSION BIEFFE [Suspect]
     Active Substance: SODIUM CHLORIDE
     Indication: HYPERTENSIVE HEART DISEASE
  2. MAGNESIUM SULFATE. [Suspect]
     Active Substance: MAGNESIUM SULFATE
     Indication: DYSPEPSIA
  3. MAGNESIUM SULFATE. [Suspect]
     Active Substance: MAGNESIUM SULFATE
     Indication: HYPERTENSIVE HEART DISEASE
     Route: 042
     Dates: start: 20190406, end: 20190407
  4. ANALGIN [FENPIVERINIUM BROMIDE/METAMIZOLE SODIUM/PITOFENONE HYDROCHLORIDE] [Suspect]
     Active Substance: FENPIVERINIUM BROMIDE\METAMIZOLE SODIUM\PITOFENONE HYDROCHLORIDE
     Indication: HYPERTENSIVE HEART DISEASE
     Route: 042
     Dates: start: 20190406, end: 20190407
  5. SODIUM CHLORIDE 0,9% W/V INTRAVENOUS INFUSION BIEFFE [Suspect]
     Active Substance: SODIUM CHLORIDE
     Indication: DYSPEPSIA
     Route: 042
     Dates: start: 20190406, end: 20190407
  6. ANALGIN [FENPIVERINIUM BROMIDE/METAMIZOLE SODIUM/PITOFENONE HYDROCHLORIDE] [Suspect]
     Active Substance: FENPIVERINIUM BROMIDE\METAMIZOLE SODIUM\PITOFENONE HYDROCHLORIDE
     Indication: DYSPEPSIA

REACTIONS (1)
  - Injection site necrosis [Unknown]

NARRATIVE: CASE EVENT DATE: 20190408
